FAERS Safety Report 7080691-X (Version None)
Quarter: 2010Q4

REPORT INFORMATION
  Report Type: 
  Country: None (occurrence: None)
  Receive Date: 20101103
  Receipt Date: 20101029
  Transmission Date: 20110411
  Serious: Yes (Death)
  Sender: FDA-Public Use
  Company Number: PHHY2010CA72927

PATIENT
  Sex: Female

DRUGS (1)
  1. FEMARA [Suspect]
     Indication: UTERINE CANCER
     Dosage: 2.5 MG DAILY
     Route: 048
     Dates: start: 20091119

REACTIONS (1)
  - DEATH [None]
